FAERS Safety Report 7426200-4 (Version None)
Quarter: 2011Q2

REPORT INFORMATION
  Report Type: 
  Country: None (occurrence: None)
  Receive Date: 20110420
  Receipt Date: 20110413
  Transmission Date: 20111010
  Serious: Yes (Life-Threatening, Hospitalization)
  Sender: FDA-Public Use
  Company Number: DE-JNJFOC-20110405754

PATIENT
  Sex: Female

DRUGS (3)
  1. SIMPONI [Suspect]
     Indication: PRODUCT USED FOR UNKNOWN INDICATION
     Route: 058
  2. PROLIA [Concomitant]
     Indication: OSTEOPOROSIS
  3. SIMPONI [Suspect]
     Route: 058

REACTIONS (8)
  - DYSPNOEA EXERTIONAL [None]
  - PULMONARY EMBOLISM [None]
  - PULMONARY HYPERTENSION [None]
  - INFLUENZA LIKE ILLNESS [None]
  - PURULENT DISCHARGE [None]
  - RESPIRATORY DISTRESS [None]
  - EMPHYSEMA [None]
  - HERPES ZOSTER [None]
